FAERS Safety Report 10702668 (Version 2)
Quarter: 2015Q1

REPORT INFORMATION
  Report Type: Spontaneous
  Country: US (occurrence: US)
  Receive Date: 20150109
  Receipt Date: 20150212
  Transmission Date: 20150721
  Serious: No
  Sender: FDA-Public Use
  Company Number: US-GLAXOSMITHKLINE-US2014GSK045656

PATIENT
  Age: 74 Year
  Sex: Female

DRUGS (6)
  1. ADVAIR DISKUS [Suspect]
     Active Substance: FLUTICASONE PROPIONATE\SALMETEROL XINAFOATE
     Indication: ASTHMA
     Dosage: 1 PUFF(S), BID
     Route: 055
  2. ATENOLOL. [Concomitant]
     Active Substance: ATENOLOL
  3. ALEVE [Concomitant]
     Active Substance: NAPROXEN SODIUM
  4. DALMANE [Concomitant]
     Active Substance: FLURAZEPAM HYDROCHLORIDE
  5. AMLODIPINE [Concomitant]
     Active Substance: AMLODIPINE BESYLATE
  6. PROAIR HFA [Concomitant]
     Active Substance: ALBUTEROL SULFATE

REACTIONS (3)
  - Drug ineffective [Unknown]
  - Inhalation therapy [Unknown]
  - Product quality issue [Unknown]

NARRATIVE: CASE EVENT DATE: 201411
